FAERS Safety Report 25644997 (Version 1)
Quarter: 2025Q3

REPORT INFORMATION
  Report Type: Spontaneous
  Country: GB (occurrence: GB)
  Receive Date: 20250805
  Receipt Date: 20250805
  Transmission Date: 20251021
  Serious: Yes (Other)
  Sender: BAYER HEALTHCARE PHARMACEUTICALS INC.
  Company Number: None

PATIENT
  Age: 48 Year
  Sex: Male
  Weight: 80 kg

DRUGS (1)
  1. CIPROFLOXACIN [Suspect]
     Active Substance: CIPROFLOXACIN
     Indication: Prostatitis
     Dosage: 500 MG, QD
     Route: 048
     Dates: start: 20250311, end: 20250318

REACTIONS (18)
  - Medication error [Unknown]
  - Tendon disorder [Not Recovered/Not Resolved]
  - Depression suicidal [Recovered/Resolved]
  - Myalgia [Not Recovered/Not Resolved]
  - Muscle rupture [Not Recovered/Not Resolved]
  - Fatigue [Recovering/Resolving]
  - Suicidal ideation [None]
  - Inflammation [None]
  - Tendon pain [None]
  - Epicondylitis [None]
  - Tendon injury [None]
  - Rotator cuff syndrome [None]
  - Depressed mood [None]
  - Flat affect [None]
  - Confusional state [None]
  - Depersonalisation/derealisation disorder [None]
  - Anxiety [None]
  - Irritability [None]

NARRATIVE: CASE EVENT DATE: 20250301
